FAERS Safety Report 5875964-X (Version None)
Quarter: 2008Q3

REPORT INFORMATION
  Report Type: 
  Country: None (occurrence: None)
  Receive Date: 20080908
  Receipt Date: 20080908
  Transmission Date: 20090109
  Serious: Yes (Life-Threatening, Hospitalization)
  Sender: FDA-Public Use
  Company Number: None

PATIENT
  Sex: Female

DRUGS (1)
  1. RASBURICASE SANOFI-AVENTIS [Suspect]
     Indication: BLOOD URIC ACID INCREASED
     Dosage: IV DRIP, 1 DOSE
     Route: 041

REACTIONS (5)
  - ACIDOSIS [None]
  - CARDIAC ARREST [None]
  - HYPERKALAEMIA [None]
  - RENAL FAILURE ACUTE [None]
  - VENTRICULAR TACHYCARDIA [None]
